FAERS Safety Report 5742981-X (Version None)
Quarter: 2008Q2

REPORT INFORMATION
  Report Type: 
  Country: None (occurrence: None)
  Receive Date: 20080519
  Receipt Date: 20080514
  Transmission Date: 20081010
  Serious: Yes (Other)
  Sender: FDA-Public Use
  Company Number: US-ASTRAZENECA-1999AU08682

PATIENT
  Age: 48 Year
  Sex: Male
  Weight: 68 kg

DRUGS (17)
  1. PULMICORT [Suspect]
     Indication: ASTHMA
     Dosage: DOSE: 400 MCG TOTAL DAILY DOSE: 800 MCG
     Route: 055
     Dates: start: 19980101
  2. PULMICORT [Suspect]
     Route: 055
     Dates: start: 19800101
  3. ALBUTEROL [Concomitant]
  4. MAXAIR [Concomitant]
  5. SINGULAIR [Concomitant]
  6. QUININE [Concomitant]
  7. ZANAFLEX [Concomitant]
  8. HERBAL REMEDIES [Concomitant]
  9. ACCOLATE [Concomitant]
     Route: 048
  10. BUTALBITAL WITH APAP [Concomitant]
  11. PREDNISONE TAB [Concomitant]
  12. CLONAZEPAM [Concomitant]
  13. SELDANE [Concomitant]
  14. LORATADINE [Concomitant]
  15. ZANTAC [Concomitant]
  16. OCCASIONAL ANTIBIOTICS [Concomitant]
  17. IBUPROFEN TABLETS [Concomitant]

REACTIONS (4)
  - CHEST DISCOMFORT [None]
  - EYE INJURY [None]
  - MUSCLE SPASMS [None]
  - SYNCOPE [None]
